FAERS Safety Report 19213625 (Version 5)
Quarter: 2024Q1

REPORT INFORMATION
  Report Type: Spontaneous
  Country: US (occurrence: US)
  Receive Date: 20210504
  Receipt Date: 20240221
  Transmission Date: 20240410
  Serious: Yes (Hospitalization, Other)
  Sender: FDA-Public Use
  Company Number: US-PFIZER INC-2021469427

PATIENT
  Age: 69 Year
  Sex: Male

DRUGS (1)
  1. XELJANZ XR [Suspect]
     Active Substance: TOFACITINIB CITRATE
     Dosage: TAKE 11 MG BY MOUTH DAILY
     Route: 048

REACTIONS (6)
  - Chest injury [Unknown]
  - Injury [Unknown]
  - Diverticulitis [Unknown]
  - Drug effect less than expected [Unknown]
  - Pain [Unknown]
  - Memory impairment [Unknown]
